FAERS Safety Report 9333944 (Version 1)
Quarter: 2013Q2

REPORT INFORMATION
  Report Type: Spontaneous
  Country: FR (occurrence: None)
  Receive Date: 20130604
  Receipt Date: 20130604
  Transmission Date: 20140414
  Serious: Yes (Hospitalization)
  Sender: FDA-Public Use
  Company Number: DSM-2013-00499

PATIENT
  Age: 79 Year
  Sex: Male

DRUGS (13)
  1. HYDROCHLOROTHIAZIDE [Suspect]
     Indication: HYPERTENSION
     Dosage: 40/?? MG
     Route: 048
     Dates: end: 20120917
  2. SINEMET [Suspect]
     Indication: EXTRAPYRAMIDAL DISORDER
     Dosage: 250/25 MG (1 DOSAGE FORMS, 1 IN 1 D), ORAL?
     Route: 048
     Dates: start: 201206, end: 20120917
  3. STAGID [Suspect]
     Indication: DIABETES MELLITUS INADEQUATE CONTROL
     Dosage: 2100 MG (700 MG, 3 IN 1 D), ORAL
     Route: 048
     Dates: end: 20120917
  4. TOPALGIC LP [Suspect]
     Indication: PAIN
     Dosage: 300 MG (150 MG, 2 IN 1 D), ORAL?
     Route: 048
     Dates: end: 20120917
  5. PERMIXON [Suspect]
     Indication: MICTURITION DISORDER
     Dosage: CAPSULE
     Route: 048
     Dates: end: 20120917
  6. EFFERALGAN [Suspect]
     Indication: PAIN
     Dosage: 1 IN 1 D TABLET?
     Route: 048
     Dates: end: 20120917
  7. RILMENIDINE [Suspect]
     Indication: HYPERTENSION
     Route: 048
     Dates: end: 20120917
  8. NOVONORM (REPAGLINIDE) [Concomitant]
  9. CLOPIDOGREL ZYDUS (CLOPIDOGREL) [Concomitant]
  10. ALLOPURINOL (ALLOPURINOL) (ALLIPURINOL) [Concomitant]
  11. ATENOLOL ZYDUS (ATENOLOL) (ATENOLOL) [Concomitant]
  12. IKOREL (NICORANDIL) (NICORANDIL) [Concomitant]
  13. MOVICOL [Concomitant]

REACTIONS (8)
  - Gait disturbance [None]
  - Vomiting [None]
  - Hallucination [None]
  - Disorientation [None]
  - Dysarthria [None]
  - Extrapyramidal disorder [None]
  - Hyponatraemia [None]
  - Cerebrovascular accident [None]
